FAERS Safety Report 8419399-4 (Version None)
Quarter: 2012Q2

REPORT INFORMATION
  Report Type: 
  Country: None (occurrence: None)
  Receive Date: 20120607
  Receipt Date: 20101008
  Transmission Date: 20120825
  Serious: Yes (Hospitalization)
  Sender: FDA-Public Use
  Company Number: US-GLAXOSMITHKLINE-A0886841A

PATIENT
  Age: 69 Year
  Sex: Female
  Weight: 62.3 kg

DRUGS (4)
  1. AVANDIA [Suspect]
     Indication: DIABETES MELLITUS
     Dosage: 4MG PER DAY
     Route: 048
     Dates: start: 20061113, end: 20070426
  2. PREVACID [Concomitant]
  3. HYDRALAZINE HCL [Concomitant]
  4. ULTRAM [Concomitant]

REACTIONS (2)
  - MYOCARDIAL ISCHAEMIA [None]
  - CARDIAC FAILURE CONGESTIVE [None]
